FAERS Safety Report 11745755 (Version 1)
Quarter: 2015Q4

REPORT INFORMATION
  Report Type: Spontaneous
  Country: None (occurrence: None)
  Receive Date: 20151116
  Receipt Date: 20151116
  Transmission Date: 20160304
  Serious: Yes (Disabling)
  Sender: FDA-Public Use
  Company Number: None

PATIENT
  Age: 37 Year
  Sex: Female
  Weight: 55 kg

DRUGS (6)
  1. PROBIOTICS [Concomitant]
     Active Substance: PROBIOTICS NOS
  2. ANTI-CANDIDA HERBAL SUPPLEMENTS [Concomitant]
  3. CHIA SEEDS [Concomitant]
     Active Substance: OMEGA-3 FATTY ACIDS
  4. VITAMIN D3 [Concomitant]
     Active Substance: CHOLECALCIFEROL
  5. SALMON OIL [Concomitant]
     Active Substance: FISH OIL
  6. AVELOX [Suspect]
     Active Substance: MOXIFLOXACIN HYDROCHLORIDE
     Indication: PRODUCTIVE COUGH
     Dosage: 5
     Route: 048
     Dates: start: 20140117, end: 20140121

REACTIONS (19)
  - Aggression [None]
  - Muscle twitching [None]
  - Panic attack [None]
  - Seizure [None]
  - Tenosynovitis [None]
  - Contusion [None]
  - Insomnia [None]
  - Nail disorder [None]
  - Pain in extremity [None]
  - Eye swelling [None]
  - Skin burning sensation [None]
  - Flatulence [None]
  - Weight decreased [None]
  - Anger [None]
  - Fatigue [None]
  - Abnormal behaviour [None]
  - Feeling abnormal [None]
  - Abdominal pain lower [None]
  - Hair disorder [None]

NARRATIVE: CASE EVENT DATE: 20140117
